FAERS Safety Report 25185681 (Version 1)
Quarter: 2025Q2

REPORT INFORMATION
  Report Type: Spontaneous
  Country: US (occurrence: US)
  Receive Date: 20250410
  Receipt Date: 20250410
  Transmission Date: 20250716
  Serious: No
  Sender: COREPHARMA
  Company Number: US-CorePharma LLC-2174613

PATIENT
  Sex: Female

DRUGS (1)
  1. LISINOPRIL [Suspect]
     Active Substance: LISINOPRIL
     Indication: Blood pressure abnormal

REACTIONS (3)
  - Pharyngeal swelling [Unknown]
  - Dysphonia [Unknown]
  - Swelling face [Unknown]
